FAERS Safety Report 5213565-7 (Version None)
Quarter: 2007Q1

REPORT INFORMATION
  Report Type: 
  Country: None (occurrence: None)
  Receive Date: 20070119
  Receipt Date: 20070110
  Transmission Date: 20070707
  Serious: Yes (Hospitalization)
  Sender: FDA-Public Use
  Company Number: DE-ABBOTT-07P-062-0356033-00

PATIENT
  Sex: Female
  Weight: 93 kg

DRUGS (4)
  1. HUMIRA [Suspect]
     Indication: RHEUMATOID ARTHRITIS
     Route: 058
     Dates: start: 20060203, end: 20060901
  2. HUMIRA [Suspect]
     Indication: PSORIATIC ARTHROPATHY
  3. ETANERCEPT [Concomitant]
     Indication: RHEUMATOID ARTHRITIS
  4. ETANERCEPT [Concomitant]
     Indication: PSORIATIC ARTHROPATHY

REACTIONS (9)
  - ABSCESS LIMB [None]
  - FLANK PAIN [None]
  - HEADACHE [None]
  - IMPAIRED HEALING [None]
  - INFLAMMATION [None]
  - INJURY [None]
  - OTITIS MEDIA [None]
  - SKIN ULCER [None]
  - TACHYCARDIA [None]
